FAERS Safety Report 4536298-9 (Version None)
Quarter: 2004Q4

REPORT INFORMATION
  Report Type: 
  Country: None (occurrence: None)
  Receive Date: 20041223
  Receipt Date: 20040614
  Transmission Date: 20050328
  Serious: No
  Sender: FDA-Public Use
  Company Number: US-GLAXOSMITHKLINE-A0514535A

PATIENT
  Age: 38 Year
  Sex: Male

DRUGS (1)
  1. FLONASE [Suspect]
     Dosage: 2SPR TWICE PER DAY
     Route: 045
     Dates: start: 20020101

REACTIONS (2)
  - GYNAECOMASTIA [None]
  - WEIGHT INCREASED [None]
